FAERS Safety Report 8063026-5 (Version None)
Quarter: 2012Q1

REPORT INFORMATION
  Report Type: 
  Country: None (occurrence: None)
  Receive Date: 20120123
  Receipt Date: 20120123
  Transmission Date: 20120608
  Serious: Yes (Other)
  Sender: FDA-Public Use
  Company Number: US-PFIZER INC-001-0902-990070

PATIENT
  Sex: Male
  Weight: 86.18 kg

DRUGS (8)
  1. KLONOPIN [Interacting]
     Dosage: 1 MG, UNK
     Route: 065
     Dates: start: 20040101
  2. KLONOPIN [Interacting]
     Dosage: 1.5 MG, UNK
     Dates: start: 20040101
  3. AMBIEN [Concomitant]
     Route: 065
  4. NARDIL [Interacting]
     Dosage: 45 MG, DAILY
     Route: 048
     Dates: start: 19990802
  5. NARDIL [Interacting]
     Dosage: 60 MG, DAILY
     Route: 048
     Dates: end: 19990802
  6. NARDIL [Interacting]
     Dosage: UNK
     Dates: start: 19840101
  7. NARDIL [Suspect]
     Dosage: 45 MG, DAILY
     Route: 048
  8. VALIUM [Concomitant]
     Route: 065

REACTIONS (25)
  - ACTIVITIES OF DAILY LIVING IMPAIRED [None]
  - APHONIA [None]
  - DRY MOUTH [None]
  - FALL [None]
  - HEART RATE ABNORMAL [None]
  - LOSS OF CONSCIOUSNESS [None]
  - SHOCK [None]
  - ENDOSCOPY [None]
  - DRY EYE [None]
  - AMNESIA [None]
  - POST GASTRIC SURGERY SYNDROME [None]
  - STENT PLACEMENT [None]
  - BALANCE DISORDER [None]
  - NEOPLASM MALIGNANT [None]
  - VISION BLURRED [None]
  - INSOMNIA [None]
  - SEXUAL DYSFUNCTION [None]
  - WEIGHT INCREASED [None]
  - SURGERY [None]
  - DEHYDRATION [None]
  - SOMNOLENCE [None]
  - APNOEA [None]
  - OEDEMA PERIPHERAL [None]
  - DRUG INTERACTION [None]
  - DRUG INEFFECTIVE [None]
